FAERS Safety Report 20119734 (Version 2)
Quarter: 2021Q4

REPORT INFORMATION
  Report Type: Spontaneous
  Country: JP (occurrence: JP)
  Receive Date: 20211126
  Receipt Date: 20211228
  Transmission Date: 20220303
  Serious: Yes (Death, Other)
  Sender: FDA-Public Use
  Company Number: JP-JAZZ-2021-JP-020706

PATIENT
  Age: 61 Year

DRUGS (2)
  1. DEFITELIO [Suspect]
     Active Substance: DEFIBROTIDE SODIUM
     Indication: Venoocclusive liver disease
     Dosage: UNKNOWN DOSE
     Route: 042
  2. DEFITELIO [Suspect]
     Active Substance: DEFIBROTIDE SODIUM
     Dosage: UNKNOWN DOSE
     Route: 042

REACTIONS (4)
  - Venoocclusive liver disease [Fatal]
  - Disease progression [Fatal]
  - Human herpesvirus 6 encephalitis [Unknown]
  - Multiple organ dysfunction syndrome [Fatal]
